FAERS Safety Report 5196687-9 (Version None)
Quarter: 2007Q1

REPORT INFORMATION
  Report Type: 
  Country: None (occurrence: None)
  Receive Date: 20070103
  Receipt Date: 20061226
  Transmission Date: 20070707
  Serious: Yes (Hospitalization)
  Sender: FDA-Public Use
  Company Number: FR-AVENTIS-200614561FR

PATIENT
  Age: 70 Year
  Sex: Male

DRUGS (5)
  1. TELFAST                            /01314201/ [Suspect]
     Indication: DERMATITIS CONTACT
     Route: 048
     Dates: end: 20060911
  2. PREVISCAN                          /00789001/ [Suspect]
     Indication: ATRIAL FIBRILLATION
     Route: 048
     Dates: end: 20060921
  3. GLUCOPHAGE [Suspect]
     Indication: DIABETES MELLITUS
     Route: 048
     Dates: end: 20060919
  4. CORDARONE [Suspect]
     Indication: ATRIAL FIBRILLATION
     Route: 048
     Dates: end: 20060921
  5. FENOFIBRATE [Concomitant]
     Indication: HYPERLIPIDAEMIA
     Route: 048

REACTIONS (3)
  - ANGIOEDEMA [None]
  - EOSINOPHILIA [None]
  - RASH [None]
